FAERS Safety Report 16881406 (Version 2)
Quarter: 2019Q4

REPORT INFORMATION
  Report Type: Spontaneous
  Country: IL (occurrence: IL)
  Receive Date: 20191003
  Receipt Date: 20191225
  Transmission Date: 20200122
  Serious: Yes (Hospitalization, Other)
  Sender: FDA-Public Use
  Company Number: IL-AMGEN-ISRSP2019161940

PATIENT
  Age: 82 Year
  Sex: Female

DRUGS (14)
  1. OCSAAR [LOSARTAN] [Concomitant]
     Dosage: 50 MILLIGRAM, QD (IN THE MORNING)
  2. SOMATULINE [LANREOTIDE] [Concomitant]
     Active Substance: LANREOTIDE
     Indication: NEUROENDOCRINE TUMOUR
     Dosage: 120 MILLIGRAM, Q4WK
     Route: 058
     Dates: start: 20150224
  3. JARDIANCE [Concomitant]
     Active Substance: EMPAGLIFLOZIN
     Dosage: 10 MILLIGRAM, QD (IN THE MORNING)
  4. BISOPROLOL FUMERATE [Concomitant]
     Active Substance: BISOPROLOL FUMARATE
     Dosage: 2.5 MILLIGRAM, QD
  5. AMLODIPINE [Concomitant]
     Active Substance: AMLODIPINE BESYLATE
     Dosage: 5 MILLIGRAM, QD (IN THE MORNING)
  6. FOLIC ACID. [Concomitant]
     Active Substance: FOLIC ACID
     Dosage: 5 MILLIGRAM, QD (EVENING)
  7. PLAVIX [Concomitant]
     Active Substance: CLOPIDOGREL BISULFATE
     Dosage: 75 MILLIGRAM, QD (IN THE MORNING)
  8. CREON [Concomitant]
     Active Substance: PANCRELIPASE AMYLASE\PANCRELIPASE LIPASE\PANCRELIPASE PROTEASE
     Dosage: 25.000 MILLIGRAM, QD (IN THE MORNING)
  9. PEN RAFA VK [Concomitant]
     Dosage: 500 MILLIGRAM, QD (IN THE MORNING)
  10. LIPITOR [Concomitant]
     Active Substance: ATORVASTATIN CALCIUM
     Dosage: 20 MILLIGRAM, QD (EVENING)
  11. PROLIA [Suspect]
     Active Substance: DENOSUMAB
     Indication: PRODUCT USED FOR UNKNOWN INDICATION
     Dosage: UNK
     Route: 065
  12. VITAMIN D [ERGOCALCIFEROL] [Concomitant]
     Active Substance: ERGOCALCIFEROL
     Dosage: 400 DROPS 70, QWK (AT EVENING)
  13. APIDRA SOLOSTAR [Concomitant]
     Active Substance: INSULIN GLULISINE
     Dosage: SEVERAL TIMES A DAY
  14. TREGLUDEC [Concomitant]
     Active Substance: INSULIN DEGLUDEC
     Dosage: 16 UNIT, QD (ONCE IN THE MORNING) INJECTION FOR THE ENTIRE NIGHT

REACTIONS (8)
  - Bundle branch block left [Not Recovered/Not Resolved]
  - Syncope [Recovering/Resolving]
  - Traumatic haematoma [Unknown]
  - Dizziness [Unknown]
  - Fall [Unknown]
  - Asthenia [Unknown]
  - Carotid arteriosclerosis [Unknown]
  - Contusion [Recovered/Resolved]

NARRATIVE: CASE EVENT DATE: 201909
